FAERS Safety Report 7479260 (Version 6)
Quarter: 2012Q4

REPORT INFORMATION
  Report Type: 
  Country: CA (occurrence: CA)
  Receive Date: 20100716
  Receipt Date: 20121031
  Transmission Date: 20130627
  Serious: Yes (Death, Other)
  Sender: FDA-Public Use
  Company Number: PHHY2009CA21409

PATIENT
  Sex: Female

DRUGS (2)
  1. SANDOSTATIN LAR [Suspect]
     Indication: NEUROENDOCRINE TUMOUR
     Dosage: 20 mg every 4 weeks
     Route: 030
     Dates: start: 20080623, end: 20081015
  2. SANDOSTATIN LAR [Suspect]
     Dosage: 30 mg, Every 4 weeks
     Route: 030
     Dates: end: 20101020

REACTIONS (5)
  - Death [Fatal]
  - Blood pressure systolic increased [Unknown]
  - Heart rate increased [Unknown]
  - Hypoaesthesia [Unknown]
  - Paraesthesia [Unknown]
